FAERS Safety Report 22153277 (Version 3)
Quarter: 2023Q2

REPORT INFORMATION
  Report Type: Spontaneous
  Country: CH (occurrence: CH)
  Receive Date: 20230329
  Receipt Date: 20230413
  Transmission Date: 20230721
  Serious: Yes (Other)
  Sender: FDA-Public Use
  Company Number: CH-BRISTOL-MYERS SQUIBB COMPANY-2023-039240

PATIENT
  Age: 72 Year
  Sex: Male

DRUGS (1)
  1. ABECMA [Suspect]
     Active Substance: IDECABTAGENE VICLEUCEL
     Indication: Plasma cell myeloma
     Route: 042
     Dates: start: 20221205

REACTIONS (6)
  - Cytokine release syndrome [Unknown]
  - Osteomyelitis [Unknown]
  - Haematotoxicity [Unknown]
  - Hypogammaglobulinaemia [Unknown]
  - Osteonecrosis [Unknown]
  - Oral cavity fistula [Unknown]

NARRATIVE: CASE EVENT DATE: 20221206
